FAERS Safety Report 20110982 (Version 3)
Quarter: 2021Q4

REPORT INFORMATION
  Report Type: Spontaneous
  Country: None (occurrence: JP)
  Receive Date: 20211124
  Receipt Date: 20211220
  Transmission Date: 20220303
  Serious: Yes (Hospitalization, Other)
  Sender: FDA-Public Use
  Company Number: JP-Ascend Therapeutics US, LLC-2122304

PATIENT
  Age: 64 Year
  Sex: Female
  Weight: 56 kg

DRUGS (9)
  1. ESTROGEL [Suspect]
     Active Substance: ESTRADIOL
     Indication: Menopausal symptoms
     Route: 062
     Dates: start: 20210910, end: 20211001
  2. ESTROGEL [Suspect]
     Active Substance: ESTRADIOL
  3. ESTROGEL [Suspect]
     Active Substance: ESTRADIOL
     Route: 062
     Dates: start: 20210910, end: 20211001
  4. ESTRADIOL [Suspect]
     Active Substance: ESTRADIOL
     Route: 062
     Dates: start: 20210614, end: 20210909
  5. MEDROXYPROGESTERONE ACETATE [Concomitant]
     Active Substance: MEDROXYPROGESTERONE ACETATE
     Route: 048
     Dates: start: 20210911, end: 20211001
  6. DUPHASTON(DYDROGESTERONE) [Concomitant]
     Route: 048
     Dates: start: 20210615, end: 20210910
  7. PREGABALIN [Concomitant]
     Active Substance: PREGABALIN
     Route: 048
     Dates: start: 202108, end: 20211001
  8. TRAMCET(PARACETAMOL, TRAMADOL HYDROCHLORIDE) [Concomitant]
     Route: 048
     Dates: start: 202108, end: 20211001
  9. MELSMON(PLACENTA) [Concomitant]
     Route: 058
     Dates: start: 20210601, end: 20210730

REACTIONS (2)
  - Thrombotic cerebral infarction [Recovered/Resolved with Sequelae]
  - Arterial thrombosis [Recovered/Resolved with Sequelae]

NARRATIVE: CASE EVENT DATE: 20211001
